FAERS Safety Report 9462554 (Version 1)
Quarter: 2013Q3

REPORT INFORMATION
  Report Type: Report from Study
  Country: US (occurrence: US)
  Receive Date: 20130816
  Receipt Date: 20130816
  Transmission Date: 20140515
  Serious: Yes (Hospitalization, Other)
  Sender: FDA-Public Use
  Company Number: US-ABBOTT-13P-163-1131801-00

PATIENT
  Age: 44 Year
  Sex: Female
  Weight: 140.74 kg

DRUGS (3)
  1. HUMIRA [Suspect]
     Indication: RHEUMATOID ARTHRITIS
     Route: 058
  2. LEVOTHYROXINE [Concomitant]
     Indication: PRODUCT USED FOR UNKNOWN INDICATION
  3. IRON [Concomitant]
     Indication: ANAEMIA

REACTIONS (7)
  - Wound dehiscence [Recovered/Resolved]
  - Uterine cancer [Recovered/Resolved]
  - Middle ear effusion [Recovered/Resolved]
  - Vertigo [Recovered/Resolved]
  - Sneezing [Recovered/Resolved]
  - Sinusitis [Recovering/Resolving]
  - Blood glucose increased [Recovered/Resolved]
